FAERS Safety Report 20074612 (Version 1)
Quarter: 2021Q4

REPORT INFORMATION
  Report Type: Spontaneous
  Country: BR (occurrence: BR)
  Receive Date: 20211116
  Receipt Date: 20211116
  Transmission Date: 20220304
  Serious: Yes (Death)
  Sender: FDA-Public Use
  Company Number: BR-PFIZER INC-202101504025

PATIENT
  Sex: Female

DRUGS (1)
  1. DIABINESE [Suspect]
     Active Substance: CHLORPROPAMIDE
     Dosage: UNK

REACTIONS (1)
  - Death [Fatal]
